FAERS Safety Report 7676106-0 (Version None)
Quarter: 2011Q3

REPORT INFORMATION
  Report Type: 
  Country: None (occurrence: None)
  Receive Date: 20110811
  Receipt Date: 20110801
  Transmission Date: 20111222
  Serious: Yes (Hospitalization, Other)
  Sender: FDA-Public Use
  Company Number: US-JNJFOC-20080204505

PATIENT
  Sex: Male
  Weight: 26 kg

DRUGS (4)
  1. REMICADE [Suspect]
     Indication: CROHN'S DISEASE
     Route: 042
     Dates: start: 20071227
  2. REMICADE [Suspect]
     Dosage: TOTAL 10 DOSES
     Route: 042
     Dates: start: 20090709
  3. REMICADE [Suspect]
     Route: 042
     Dates: start: 20070112
  4. MERCAPTOPURINE [Concomitant]

REACTIONS (2)
  - STREPTOCOCCAL INFECTION [None]
  - GASTROENTERITIS [None]
